FAERS Safety Report 24056462 (Version 1)
Quarter: 2024Q3

REPORT INFORMATION
  Report Type: Spontaneous
  Country: IT (occurrence: IT)
  Receive Date: 20240705
  Receipt Date: 20240705
  Transmission Date: 20241016
  Serious: Yes (Hospitalization)
  Sender: SAMSUNG BIOEPIS
  Company Number: None

PATIENT
  Age: 45 Year
  Sex: Male
  Weight: 70 kg

DRUGS (1)
  1. IMRALDI [Suspect]
     Active Substance: ADALIMUMAB
     Indication: Colitis ulcerative
     Route: 058
     Dates: start: 20230612, end: 20231228

REACTIONS (3)
  - Diarrhoea haemorrhagic [Recovered/Resolved]
  - Loss of therapeutic response [Unknown]
  - Product use issue [Unknown]

NARRATIVE: CASE EVENT DATE: 20240102
